FAERS Safety Report 9936972 (Version 1)
Quarter: 2014Q1

REPORT INFORMATION
  Report Type: Spontaneous
  Country: US (occurrence: None)
  Receive Date: 20140115
  Receipt Date: 20140115
  Transmission Date: 20141002
  Serious: No
  Sender: FDA-Public Use
  Company Number: 2013US002519

PATIENT
  Age: 80 Year
  Sex: Male
  Weight: 63 kg

DRUGS (12)
  1. ICLUSIG (PONATINIB) TABLET, 45MG [Suspect]
     Indication: CHRONIC MYELOID LEUKAEMIA
     Route: 048
     Dates: start: 20130507
  2. OXYCODONE (OXYCODONE) [Concomitant]
  3. TRAZODONE (TRAZODONE) [Concomitant]
  4. ACCUPRIL (QUINAPRIL HYDROCHLORIDE) [Concomitant]
  5. LASIX (FUROSEMIDE) [Concomitant]
  6. METOPROLOL (METOPROLOL) [Concomitant]
  7. KLOR (POTASSIUM CHLORIDE) [Concomitant]
  8. OMEGA 3 (FISH OIL) [Concomitant]
  9. MIRALAX (MACROGOL) [Concomitant]
  10. PROBIOTICS [Concomitant]
  11. MINERALS NOS (MINERALS NOS) [Concomitant]
  12. CALCIUM (CALCIUM) [Concomitant]

REACTIONS (2)
  - Pain in extremity [None]
  - Dizziness [None]
